FAERS Safety Report 5692673-0 (Version None)
Quarter: 2008Q2

REPORT INFORMATION
  Report Type: 
  Country: None (occurrence: None)
  Receive Date: 20080401
  Receipt Date: 20080326
  Transmission Date: 20081010
  Serious: Yes (Other)
  Sender: FDA-Public Use
  Company Number: THQ2008A00555

PATIENT
  Age: 64 Year
  Sex: Male

DRUGS (5)
  1. ACTOS [Suspect]
     Indication: TYPE 2 DIABETES MELLITUS
     Dosage: 30 MG (30 MG, 1 IN 1 D) PER ORAL; 30 MG (30 MG, 1 IN 1 D) PER ORAL
     Route: 048
     Dates: start: 20070601, end: 20070601
  2. ACTOS [Suspect]
     Indication: TYPE 2 DIABETES MELLITUS
     Dosage: 30 MG (30 MG, 1 IN 1 D) PER ORAL; 30 MG (30 MG, 1 IN 1 D) PER ORAL
     Route: 048
     Dates: start: 20070601, end: 20070630
  3. DAONIL (GLIBENCLAMIDE) [Concomitant]
  4. GLUCOPHAGE [Concomitant]
  5. RENITEC (ENALAPRIL MALEATE, HYDROCHLOROTIAZIDE) [Concomitant]

REACTIONS (3)
  - ERYTHEMA [None]
  - EYELID IRRITATION [None]
  - HYPERSENSITIVITY [None]
